FAERS Safety Report 25518469 (Version 1)
Quarter: 2025Q3

REPORT INFORMATION
  Report Type: Spontaneous
  Country: US (occurrence: US)
  Receive Date: 20250704
  Receipt Date: 20250704
  Transmission Date: 20251021
  Serious: Yes (Death, Life-Threatening, Hospitalization, Other)
  Sender: PROCTER AND GAMBLE
  Company Number: US-MLMSERVICE-20250620-PI550110-00029-1

PATIENT
  Age: 68 Year
  Sex: Male

DRUGS (1)
  1. ACETAMINOPHEN [Suspect]
     Active Substance: ACETAMINOPHEN

REACTIONS (22)
  - Overdose [Fatal]
  - Toxicity to various agents [Fatal]
  - Acute hepatic failure [Fatal]
  - Upper gastrointestinal haemorrhage [Fatal]
  - Metabolic encephalopathy [Fatal]
  - Renal failure [Fatal]
  - Coagulopathy [Fatal]
  - Shock [Fatal]
  - Hepatic encephalopathy [Fatal]
  - Penile haemorrhage [Fatal]
  - Haematoma [Fatal]
  - Ascites [Fatal]
  - Generalised oedema [Fatal]
  - Condition aggravated [Fatal]
  - Haematemesis [Fatal]
  - Anaemia [Fatal]
  - Faeces discoloured [Fatal]
  - Pulse absent [Fatal]
  - Hepatic steatosis [Fatal]
  - Hypotension [Fatal]
  - Smooth muscle antibody positive [Fatal]
  - Analgesic drug level increased [Fatal]
